FAERS Safety Report 10914003 (Version 1)
Quarter: 2015Q1

REPORT INFORMATION
  Report Type: Spontaneous
  Country: TR (occurrence: TR)
  Receive Date: 20150313
  Receipt Date: 20150313
  Transmission Date: 20150721
  Serious: Yes (Death, Life-Threatening, Hospitalization)
  Sender: FDA-Public Use
  Company Number: TR-BAYER-2015-035216

PATIENT
  Age: 18 Year
  Sex: Female

DRUGS (1)
  1. ACETYLSALICYLIC ACID({=100 MG) [Suspect]
     Active Substance: ASPIRIN

REACTIONS (11)
  - Dyspnoea [Fatal]
  - Hyperglycaemia [None]
  - Hypotension [None]
  - Cardiac arrest [Fatal]
  - Cardiac arrest [None]
  - Nausea [Fatal]
  - Vomiting [Fatal]
  - Respiratory distress [None]
  - Loss of consciousness [None]
  - Toxicity to various agents [Fatal]
  - Metabolic acidosis [None]
